FAERS Safety Report 10173143 (Version 1)
Quarter: 2014Q2

REPORT INFORMATION
  Report Type: Spontaneous
  Country: US (occurrence: US)
  Receive Date: 20140515
  Receipt Date: 20140515
  Transmission Date: 20141212
  Serious: No
  Sender: FDA-Public Use
  Company Number: US-PFIZER INC-2014129554

PATIENT
  Age: 69 Year
  Sex: Female
  Weight: 115.6 kg

DRUGS (6)
  1. PROCARDIA XL [Suspect]
     Indication: HYPERTENSION
     Dosage: 30 MG, 1X/DAY
     Route: 048
     Dates: start: 2011
  2. PROCARDIA XL [Suspect]
     Indication: ANGINA PECTORIS
  3. GLIPIZIDE [Concomitant]
     Indication: DIABETES MELLITUS
     Dosage: UNK
  4. VASOTEC [Concomitant]
     Dosage: UNK
  5. CLONIDINE [Concomitant]
     Dosage: UNK
  6. METFORMIN [Concomitant]
     Indication: DIABETES MELLITUS
     Dosage: UNK

REACTIONS (1)
  - Alopecia [Unknown]
